FAERS Safety Report 15195787 (Version 3)
Quarter: 2020Q2

REPORT INFORMATION
  Report Type: Spontaneous
  Country: US (occurrence: US)
  Receive Date: 20180725
  Receipt Date: 20200519
  Transmission Date: 20200713
  Serious: No
  Sender: FDA-Public Use
  Company Number: US-PFIZER INC-2018295195

PATIENT
  Age: 55 Year
  Sex: Female

DRUGS (2)
  1. GENOTROPIN MQ [Suspect]
     Active Substance: SOMATROPIN
     Dosage: 0.6 MG, DAILY(0.6MG 7DAYS/WK(WEEK)
  2. GENOTROPIN MQ [Suspect]
     Active Substance: SOMATROPIN
     Dosage: 0.4 MG, DAILY
     Dates: start: 201302

REACTIONS (8)
  - Low density lipoprotein increased [Unknown]
  - Platelet count increased [Unknown]
  - Blood triglycerides increased [Unknown]
  - Glycosylated haemoglobin increased [Unknown]
  - Blood cholesterol increased [Unknown]
  - Very low density lipoprotein increased [Unknown]
  - Iron binding capacity total increased [Unknown]
  - Insulin-like growth factor decreased [Unknown]
